FAERS Safety Report 6396877-3 (Version None)
Quarter: 2009Q4

REPORT INFORMATION
  Report Type: 
  Country: None (occurrence: None)
  Receive Date: 20091012
  Receipt Date: 20090623
  Transmission Date: 20100525
  Serious: No
  Sender: FDA-Public Use
  Company Number: US-ASTRAZENECA-2009UW17353

PATIENT
  Age: 82 Year
  Sex: Female
  Weight: 80.3 kg

DRUGS (11)
  1. SYMBICORT [Suspect]
     Indication: EMPHYSEMA
     Dosage: 160/4.5 UG 2 PUFFS
     Route: 055
     Dates: start: 20090501
  2. COMBIVENT [Concomitant]
  3. CLONIDINE [Concomitant]
  4. COREG [Concomitant]
  5. LASIX [Concomitant]
  6. ZOLOFT [Concomitant]
  7. AVAPRO [Concomitant]
  8. VITAMINS [Concomitant]
  9. XALATAN [Concomitant]
  10. ATIVAN [Concomitant]
  11. COQ10 [Concomitant]

REACTIONS (2)
  - DYSPEPSIA [None]
  - POLLAKIURIA [None]
